FAERS Safety Report 11913519 (Version 1)
Quarter: 2016Q1

REPORT INFORMATION
  Report Type: Spontaneous
  Country: DE (occurrence: DE)
  Receive Date: 20160113
  Receipt Date: 20160113
  Transmission Date: 20160526
  Serious: Yes (Hospitalization)
  Sender: FDA-Public Use
  Company Number: DE-DSJP-DSE-2016-101636

PATIENT

DRUGS (1)
  1. LIXIANA [Suspect]
     Active Substance: EDOXABAN TOSILATE MONOHYDRATE
     Indication: ANGIOPATHY
     Dosage: 60 MG, QD
     Route: 048
     Dates: start: 201508, end: 201512

REACTIONS (2)
  - Off label use [Recovered/Resolved]
  - Embolic stroke [Recovering/Resolving]

NARRATIVE: CASE EVENT DATE: 201508
